FAERS Safety Report 8552285-8 (Version None)
Quarter: 2012Q3

REPORT INFORMATION
  Report Type: 
  Country: None (occurrence: None)
  Receive Date: 20120723
  Receipt Date: 20120723
  Transmission Date: 20120928
  Serious: Yes (Life-Threatening)
  Sender: FDA-Public Use
  Company Number: None

PATIENT
  Sex: Female
  Weight: 72.5755 kg

DRUGS (1)
  1. CARDIZEM LA [Suspect]
     Indication: CHEST PAIN
     Dosage: 240 MG DAILY PO
     Route: 048

REACTIONS (13)
  - HEADACHE [None]
  - OEDEMA PERIPHERAL [None]
  - HYPOKINESIA [None]
  - DECREASED ACTIVITY [None]
  - NAUSEA [None]
  - DIARRHOEA [None]
  - FEELING ABNORMAL [None]
  - PRESYNCOPE [None]
  - INSOMNIA [None]
  - DYSPNOEA [None]
  - FATIGUE [None]
  - ASTHENIA [None]
  - GAIT DISTURBANCE [None]
